FAERS Safety Report 15326246 (Version 1)
Quarter: 2018Q3

REPORT INFORMATION
  Report Type: Spontaneous
  Country: US (occurrence: US)
  Receive Date: 20180828
  Receipt Date: 20180828
  Transmission Date: 20181010
  Serious: No
  Sender: FDA-Public Use
  Company Number: US-MYLANLABS-2018M1061903

PATIENT
  Sex: Female
  Weight: 52 kg

DRUGS (2)
  1. LEVONORGESTREL AND ETHINYL ESTRADIOL TABLETS, USP [Suspect]
     Active Substance: ETHINYL ESTRADIOL\LEVONORGESTREL
     Indication: MENORRHAGIA
  2. LEVONORGESTREL AND ETHINYL ESTRADIOL TABLETS, USP [Suspect]
     Active Substance: ETHINYL ESTRADIOL\LEVONORGESTREL
     Indication: CONTRACEPTION
     Dosage: UNK
     Route: 048

REACTIONS (6)
  - Inappropriate schedule of drug administration [Recovering/Resolving]
  - Polymenorrhoea [Recovering/Resolving]
  - Drug dose omission [Unknown]
  - Dysmenorrhoea [Recovering/Resolving]
  - Muscle spasms [Recovering/Resolving]
  - Menorrhagia [Recovering/Resolving]
